FAERS Safety Report 4951472-5 (Version None)
Quarter: 2006Q1

REPORT INFORMATION
  Report Type: 
  Country: None (occurrence: None)
  Receive Date: 20060317
  Receipt Date: 20060309
  Transmission Date: 20060701
  Serious: No
  Sender: FDA-Public Use
  Company Number: TPA2006A00409

PATIENT
  Age: 58 Year
  Sex: Male
  Weight: 92.9874 kg

DRUGS (2)
  1. ACTOS(PIOGLITAZONE HYRDOCHLORIDE) (30 MILLIGRAM, TABLETS) [Suspect]
     Indication: DIABETES MELLITUS NON-INSULIN-DEPENDENT
     Dosage: 30 MG, 1 IN 1 D, PER ORAL
     Route: 048
     Dates: start: 20010309
  2. PLENDIL [Concomitant]

REACTIONS (3)
  - CARPAL TUNNEL DECOMPRESSION [None]
  - NEPHROLITHIASIS [None]
  - OEDEMA PERIPHERAL [None]
